FAERS Safety Report 7175322-4 (Version None)
Quarter: 2010Q4

REPORT INFORMATION
  Report Type: 
  Country: None (occurrence: None)
  Receive Date: 20101207
  Receipt Date: 20101122
  Transmission Date: 20110411
  Serious: Yes (Other)
  Sender: FDA-Public Use
  Company Number: 012047

PATIENT
  Age: 6 Year
  Sex: Male

DRUGS (8)
  1. BUSULFEX [Suspect]
     Indication: STEM CELL TRANSPLANT
     Dosage: Q6HR, INTRAVENOUS
     Route: 042
  2. CYCLOPHOSPHAMIDE [Concomitant]
  3. PHENYTOIN [Concomitant]
  4. CYCLOSPORINE [Concomitant]
  5. METHOTREXATE [Concomitant]
  6. G-CSF (GRANULOCYTE COLONY STIMULATING FACTOR) [Concomitant]
  7. FLUDARABINE PHOSPHATE [Concomitant]
  8. ATG (ANTILYMPHOCYTE IMMUNOGLOBULIN (HORSE)) [Concomitant]

REACTIONS (4)
  - BK VIRUS INFECTION [None]
  - CYSTITIS [None]
  - VENOOCCLUSIVE LIVER DISEASE [None]
  - VOMITING [None]
